FAERS Safety Report 19846328 (Version 1)
Quarter: 2021Q3

REPORT INFORMATION
  Report Type: Spontaneous
  Country: US (occurrence: US)
  Receive Date: 20210916
  Receipt Date: 20210916
  Transmission Date: 20211014
  Serious: Yes (Other)
  Sender: FDA-Public Use
  Company Number: US-ASTRAZENECA-2021A722760

PATIENT
  Age: 58 Year
  Sex: Female
  Weight: 59.9 kg

DRUGS (1)
  1. LYNPARZA [Suspect]
     Active Substance: OLAPARIB
     Indication: BREAST CANCER FEMALE
     Route: 048
     Dates: start: 20210801

REACTIONS (4)
  - Illness [Unknown]
  - Palpitations [Unknown]
  - Diarrhoea [Unknown]
  - Nausea [Unknown]
